FAERS Safety Report 24114225 (Version 1)
Quarter: 2024Q3

REPORT INFORMATION
  Report Type: Spontaneous
  Country: CA (occurrence: CA)
  Receive Date: 20240720
  Receipt Date: 20240720
  Transmission Date: 20241016
  Serious: Yes (Other)
  Sender: CELLTRION
  Company Number: CA-PFIZER INC-202400213238

PATIENT

DRUGS (5)
  1. INFLECTRA [Suspect]
     Active Substance: INFLIXIMAB-DYYB
     Indication: Ankylosing spondylitis
     Dosage: 550 MG, W 0, 2, 6 AND Q 8 WEEKS
     Route: 064
     Dates: start: 20221215
  2. INFLECTRA [Suspect]
     Active Substance: INFLIXIMAB-DYYB
     Dosage: 500 MG, W 0, 2, 6 AND Q 8 WEEKS
     Route: 064
     Dates: start: 20240510
  3. INFLECTRA [Suspect]
     Active Substance: INFLIXIMAB-DYYB
     Dosage: 500 MG, W 0, 2, 6 AND Q 8 WEEKS
     Route: 064
     Dates: start: 20240710
  4. ROBAXACET [Concomitant]
     Active Substance: ACETAMINOPHEN\METHOCARBAMOL
     Dosage: 1 DF
     Route: 064
  5. DICLOFENAC [Concomitant]
     Active Substance: DICLOFENAC
     Dosage: 1 DF
     Route: 064

REACTIONS (2)
  - Maternal exposure during pregnancy [Unknown]
  - Follicle stimulating hormone deficiency [Unknown]

NARRATIVE: CASE EVENT DATE: 20240101
